FAERS Safety Report 20157220 (Version 1)
Quarter: 2021Q4

REPORT INFORMATION
  Report Type: Report from Study
  Country: PE (occurrence: None)
  Receive Date: 20211207
  Receipt Date: 20211207
  Transmission Date: 20220303
  Serious: Yes (Death)
  Sender: FDA-Public Use
  Company Number: 2021A854135

PATIENT
  Age: 23798 Day
  Sex: Male

DRUGS (1)
  1. LYNPARZA [Suspect]
     Active Substance: OLAPARIB
     Indication: Prostate cancer metastatic
     Route: 048
     Dates: start: 20210826

REACTIONS (1)
  - Death [Fatal]

NARRATIVE: CASE EVENT DATE: 20211124
